FAERS Safety Report 11696003 (Version 7)
Quarter: 2017Q2

REPORT INFORMATION
  Report Type: Report from Study
  Country: ES (occurrence: ES)
  Receive Date: 20151104
  Receipt Date: 20170505
  Transmission Date: 20170829
  Serious: Yes (Other)
  Sender: FDA-Public Use
  Company Number: PHHO2015ES018226

PATIENT
  Age: 80 Year
  Sex: Male
  Weight: 93 kg

DRUGS (2)
  1. TRAMETINIB [Suspect]
     Active Substance: TRAMETINIB
     Indication: METASTATIC MALIGNANT MELANOMA
     Dosage: 2 MG, QD
     Route: 048
     Dates: start: 20130228
  2. DABRAFENIB [Suspect]
     Active Substance: DABRAFENIB
     Indication: METASTATIC MALIGNANT MELANOMA
     Dosage: 300 MG, QD
     Route: 048
     Dates: start: 20130228

REACTIONS (5)
  - Second primary malignancy [Recovered/Resolved]
  - Basal cell carcinoma [Recovered/Resolved]
  - Actinic keratosis [Recovered/Resolved]
  - Basal cell carcinoma [Recovered/Resolved]
  - Squamous cell carcinoma [Recovered/Resolved]

NARRATIVE: CASE EVENT DATE: 20150901
